FAERS Safety Report 9107601 (Version 1)
Quarter: 2013Q1

REPORT INFORMATION
  Report Type: Spontaneous
  Country: JP (occurrence: JP)
  Receive Date: 20130221
  Receipt Date: 20130221
  Transmission Date: 20140127
  Serious: Yes (Death, Life-Threatening)
  Sender: FDA-Public Use
  Company Number: JP-AMGEN-JPNSP2013010979

PATIENT
  Age: 68 Year
  Sex: Male
  Weight: 63 kg

DRUGS (4)
  1. VECTIBIX [Suspect]
     Indication: RECTAL CANCER
     Dosage: 350 MG, UNK
     Route: 041
     Dates: start: 20111122, end: 20111122
  2. LEUCOVORIN                         /00566701/ [Concomitant]
     Dosage: UNK
  3. 5-FU /00098801/ [Concomitant]
     Dosage: UNK
  4. IRINOTECAN [Concomitant]
     Dosage: UNK

REACTIONS (4)
  - Infusion related reaction [Recovered/Resolved]
  - Pleural effusion [Fatal]
  - Dermatitis acneiform [Unknown]
  - Paronychia [Unknown]
